FAERS Safety Report 5332635-6 (Version None)
Quarter: 2007Q2

REPORT INFORMATION
  Report Type: 
  Country: None (occurrence: None)
  Receive Date: 20070523
  Receipt Date: 20070508
  Transmission Date: 20071010
  Serious: Yes (Death, Hospitalization, Other)
  Sender: FDA-Public Use
  Company Number: US-PFIZER INC-2006065277

PATIENT
  Sex: Female
  Weight: 117.9 kg

DRUGS (2)
  1. CELEBREX [Suspect]
     Route: 048
  2. BEXTRA [Suspect]
     Indication: ARTHRITIS
     Route: 048
     Dates: start: 20040323, end: 20040502

REACTIONS (1)
  - MYOCARDIAL INFARCTION [None]
